FAERS Safety Report 5518009-3 (Version None)
Quarter: 2007Q4

REPORT INFORMATION
  Report Type: 
  Country: None (occurrence: None)
  Receive Date: 20071113
  Receipt Date: 20071030
  Transmission Date: 20080405
  Serious: Yes (Hospitalization)
  Sender: FDA-Public Use
  Company Number: US021597

PATIENT
  Age: 40 Year
  Sex: Female
  Weight: 108.8633 kg

DRUGS (12)
  1. TRISENOX [Suspect]
     Indication: ACUTE PROMYELOCYTIC LEUKAEMIA
     Dosage: 1.5 MG/KG QD INTRAVENOUS DRIP
     Route: 041
     Dates: start: 20071006, end: 20071025
  2. AMITRIPTYLINE HCL [Concomitant]
  3. ABILIFY [Concomitant]
  4. ADVAIR DISKUS 100/50 [Concomitant]
  5. METFORMIN HCL [Concomitant]
  6. SINGULAIR /01362601/ [Concomitant]
  7. NAPROSYN [Concomitant]
  8. OMEPRAZOLE [Concomitant]
  9. OXYCONTIN [Concomitant]
  10. ZOLOFT [Concomitant]
  11. POTASSIUM CHLORIDE [Concomitant]
  12. MAGNESIUM OXIDE [Concomitant]

REACTIONS (2)
  - CHEST PAIN [None]
  - RHABDOMYOLYSIS [None]
